FAERS Safety Report 19849786 (Version 1)
Quarter: 2021Q3

REPORT INFORMATION
  Report Type: Spontaneous
  Country: JP (occurrence: JP)
  Receive Date: 20210917
  Receipt Date: 20210917
  Transmission Date: 20211014
  Serious: Yes (Hospitalization, Other)
  Sender: FDA-Public Use
  Company Number: JP-009507513-2109JPN001273J

PATIENT
  Age: 8 Decade
  Sex: Male

DRUGS (3)
  1. KEYTRUDA [Suspect]
     Active Substance: PEMBROLIZUMAB
     Dosage: 400 MILLIGRAM, EVERY 6 WEEKS
     Route: 041
     Dates: start: 202009, end: 202105
  2. KEYTRUDA [Suspect]
     Active Substance: PEMBROLIZUMAB
     Dosage: 400 MILLIGRAM, EVERY 6 WEEKS
     Route: 041
     Dates: start: 20210820, end: 20210820
  3. KEYTRUDA [Suspect]
     Active Substance: PEMBROLIZUMAB
     Indication: CARDIAC NEOPLASM MALIGNANT
     Dosage: 200 MILLIGRAM, Q3W
     Route: 041
     Dates: start: 202006, end: 202008

REACTIONS (3)
  - Coronavirus infection [Unknown]
  - Organising pneumonia [Recovered/Resolved]
  - Interstitial lung disease [Recovered/Resolved]

NARRATIVE: CASE EVENT DATE: 202105
